FAERS Safety Report 4287609-3 (Version None)
Quarter: 2004Q1

REPORT INFORMATION
  Report Type: 
  Country: None (occurrence: None)
  Receive Date: 20040205
  Receipt Date: 20040115
  Transmission Date: 20041129
  Serious: Yes (Hospitalization, Other)
  Sender: FDA-Public Use
  Company Number: USA031049928

PATIENT
  Age: 87 Year
  Sex: Female
  Weight: 45 kg

DRUGS (10)
  1. FORTEO [Suspect]
     Indication: OSTEOPOROSIS
     Dosage: 20 UG/DAY
     Dates: start: 20030926
  2. LANOXIN [Concomitant]
  3. ZESTRIL [Concomitant]
  4. SYNTHROID [Concomitant]
  5. LASIX [Concomitant]
  6. NITROSTAT [Concomitant]
  7. ASPIRIN [Concomitant]
  8. VITAMIN E [Concomitant]
  9. MULTI-VITAMIN [Concomitant]
  10. CALCIUM [Concomitant]

REACTIONS (3)
  - CONDITION AGGRAVATED [None]
  - INJECTION SITE HAEMORRHAGE [None]
  - LUNG DISORDER [None]
